FAERS Safety Report 17060203 (Version 1)
Quarter: 2019Q4

REPORT INFORMATION
  Report Type: Spontaneous
  Country: US (occurrence: US)
  Receive Date: 20191121
  Receipt Date: 20191121
  Transmission Date: 20200122
  Serious: Yes (Other)
  Sender: FDA-Public Use
  Company Number: US-HIKMA PHARMACEUTICALS USA INC.-US-H14001-19-05809

PATIENT
  Sex: Male

DRUGS (2)
  1. MEPERIDINE [Suspect]
     Active Substance: MEPERIDINE
     Indication: PAIN
     Route: 048
     Dates: start: 2019
  2. MEPERIDINE [Suspect]
     Active Substance: MEPERIDINE
     Route: 048

REACTIONS (5)
  - Dysphagia [Not Recovered/Not Resolved]
  - Feeling abnormal [Not Recovered/Not Resolved]
  - Dysgeusia [Not Recovered/Not Resolved]
  - Dizziness [Not Recovered/Not Resolved]
  - Oral toxicity [Not Recovered/Not Resolved]
